FAERS Safety Report 11124281 (Version 1)
Quarter: 2015Q2

REPORT INFORMATION
  Report Type: Spontaneous
  Country: US (occurrence: None)
  Receive Date: 20150518
  Receipt Date: 20150518
  Transmission Date: 20150821
  Serious: Yes (Hospitalization, Other)
  Sender: FDA-Public Use
  Company Number: 2015JUB00135

PATIENT
  Age: 39 Year
  Sex: Male
  Weight: 120 kg

DRUGS (3)
  1. QUETIAPINE (QUETIAPINE) UNKNOWN, UNKNOWN [Suspect]
     Active Substance: QUETIAPINE
     Indication: BIPOLAR I DISORDER
     Dosage: 150 MG, 1X/DAY BEFORE BEDTIME
  2. LORAZEPAM. [Concomitant]
     Active Substance: LORAZEPAM
  3. VALPROIC ACID (VALPROIC ACID) UNKNOWN [Suspect]
     Active Substance: VALPROIC ACID
     Dosage: 2500 MG, 1X/DAY BEFORE BEDTIME

REACTIONS (10)
  - Diabetic ketoacidosis [None]
  - Hypercapnia [None]
  - Hyperosmolar hyperglycaemic state [None]
  - Condition aggravated [None]
  - Drug interaction [None]
  - Hyperlipidaemia [None]
  - Hypoxia [None]
  - Metabolic syndrome [None]
  - Treatment noncompliance [None]
  - Mania [None]
